FAERS Safety Report 13493045 (Version 1)
Quarter: 2017Q2

REPORT INFORMATION
  Report Type: Spontaneous
  Country: US (occurrence: US)
  Receive Date: 20170427
  Receipt Date: 20170427
  Transmission Date: 20170830
  Serious: No
  Sender: FDA-Public Use
  Company Number: US-ROCHE-1195864

PATIENT
  Sex: Male

DRUGS (1)
  1. ERIVEDGE [Suspect]
     Active Substance: VISMODEGIB
     Indication: BASAL CELL CARCINOMA
     Route: 048
     Dates: start: 201204

REACTIONS (4)
  - Alopecia [Recovering/Resolving]
  - Folliculitis [Recovering/Resolving]
  - Muscle spasms [Recovering/Resolving]
  - Dysgeusia [Recovering/Resolving]
